FAERS Safety Report 25883825 (Version 1)
Quarter: 2025Q4

REPORT INFORMATION
  Report Type: Report from Study
  Country: US (occurrence: US)
  Receive Date: 20251006
  Receipt Date: 20251006
  Transmission Date: 20260118
  Serious: Yes (Death)
  Sender: JOHNSON AND JOHNSON
  Company Number: US-JNJFOC-20251003176

PATIENT
  Age: 51 Year
  Sex: Female

DRUGS (1)
  1. CARVYKTI [Suspect]
     Active Substance: CILTACABTAGENE AUTOLEUCEL
     Indication: Plasma cell myeloma
     Dosage: TOTAL NUMBER OF CELLS ADMINISTERED: 57.68; TOTAL CELLS EXPONENT VALUE: 6
     Route: 065
     Dates: start: 2023, end: 2023

REACTIONS (3)
  - Bacterial infection [Fatal]
  - Fungal infection [Fatal]
  - Respiratory failure [Fatal]
